FAERS Safety Report 8346687-2 (Version None)
Quarter: 2012Q2

REPORT INFORMATION
  Report Type: 
  Country: None (occurrence: None)
  Receive Date: 20120509
  Receipt Date: 20120507
  Transmission Date: 20120825
  Serious: Yes (Other)
  Sender: FDA-Public Use
  Company Number: PHHY2009CA35645

PATIENT
  Sex: Female

DRUGS (9)
  1. SANDOSTATIN LAR [Suspect]
     Dosage: 20 MG, EVERY 4 WEEKS
     Route: 030
  2. SANDOSTATIN LAR [Suspect]
     Indication: CARCINOID SYNDROME
     Dosage: 20 MG EVERY FOUR WEEKS
     Route: 030
     Dates: start: 20090819
  3. FLUOXETINE [Concomitant]
     Indication: SOMNOLENCE
     Dosage: 10 MG, QD
     Route: 048
  4. ACIDOPHILUS [Concomitant]
  5. SANDOSTATIN LAR [Suspect]
     Dosage: 20 MG, QMO
     Route: 030
  6. OCTREOTIDE ACETATE [Suspect]
     Indication: CARCINOID SYNDROME
  7. METAMUCIL-2 [Concomitant]
  8. SANDOSTATIN LAR [Suspect]
     Dosage: 30 MG, EVERY 4 WEEKS
     Route: 030
  9. SANDOSTATIN LAR [Suspect]
     Dosage: 20 MG, EVERY 4 WEEKS
     Route: 030

REACTIONS (11)
  - BLOOD PRESSURE INCREASED [None]
  - EMOTIONAL DISORDER [None]
  - OSTEOPOROSIS [None]
  - FAECES DISCOLOURED [None]
  - MUSCULOSKELETAL PAIN [None]
  - FATIGUE [None]
  - WEIGHT INCREASED [None]
  - DIARRHOEA [None]
  - FLATULENCE [None]
  - OEDEMA PERIPHERAL [None]
  - INJECTION SITE PAIN [None]
